FAERS Safety Report 10216698 (Version 2)
Quarter: 2014Q2

REPORT INFORMATION
  Report Type: Spontaneous
  Country: US (occurrence: US)
  Receive Date: 20140604
  Receipt Date: 20140620
  Transmission Date: 20141212
  Serious: Yes (Hospitalization, Other)
  Sender: FDA-Public Use
  Company Number: US-ASTRAZENECA-2014SE33103

PATIENT
  Age: 76 Year
  Sex: Male

DRUGS (3)
  1. SYMBICORT [Suspect]
     Indication: ASTHMA
     Dosage: 160/4.5MCG 2 PUFFS TWICE A DAY
     Route: 055
     Dates: start: 201306
  2. SYMBICORT [Suspect]
     Indication: CHRONIC OBSTRUCTIVE PULMONARY DISEASE
     Dosage: 160/4.5MCG 2 PUFFS TWICE A DAY
     Route: 055
     Dates: start: 201306
  3. ALBUTEROL [Concomitant]
     Dosage: 1 PUFF
     Route: 050

REACTIONS (7)
  - Pneumonia [Unknown]
  - Oxygen saturation decreased [Unknown]
  - Productive cough [Unknown]
  - Influenza [Unknown]
  - Productive cough [Unknown]
  - Throat irritation [Unknown]
  - Device misuse [Unknown]
